FAERS Safety Report 4725187-2 (Version None)
Quarter: 2005Q3

REPORT INFORMATION
  Report Type: 
  Country: None (occurrence: None)
  Receive Date: 20050725
  Receipt Date: 20050711
  Transmission Date: 20060218
  Serious: Yes (Hospitalization)
  Sender: FDA-Public Use
  Company Number: 05USA0147

PATIENT
  Sex: Male

DRUGS (1)
  1. GLIADEL [Suspect]
     Indication: GLIOBLASTOMA MULTIFORME
     Dates: start: 20050126

REACTIONS (7)
  - BACTERIAL INFECTION [None]
  - BRAIN NEOPLASM [None]
  - CEREBRAL CYST [None]
  - CONVULSION [None]
  - HEADACHE [None]
  - NECROSIS [None]
  - PURULENCE [None]
